FAERS Safety Report 16219131 (Version 1)
Quarter: 2019Q2

REPORT INFORMATION
  Report Type: Spontaneous
  Country: DE (occurrence: DE)
  Receive Date: 20190419
  Receipt Date: 20190419
  Transmission Date: 20190711
  Serious: Yes (Hospitalization, Other)
  Sender: FDA-Public Use
  Company Number: DE-ALLERGAN-1916346US

PATIENT
  Sex: Female

DRUGS (4)
  1. PUREGON (FOLLITROPIN) [Suspect]
     Active Substance: FOLLITROPIN
     Indication: ASSISTED REPRODUCTIVE TECHNOLOGY
     Dosage: UNK
  2. ORGALUTRAN [Suspect]
     Active Substance: GANIRELIX ACETATE
     Indication: PRODUCT USED FOR UNKNOWN INDICATION
     Dosage: UNK
  3. MENOGON [Suspect]
     Active Substance: MENOTROPINS
     Indication: ASSISTED REPRODUCTIVE TECHNOLOGY
     Dosage: UNK
  4. TRIPTORELIN PAMOATE - BP [Suspect]
     Active Substance: TRIPTORELIN PAMOATE
     Indication: ASSISTED REPRODUCTIVE TECHNOLOGY
     Dosage: UNK

REACTIONS (2)
  - Off label use [Unknown]
  - Ovarian hyperstimulation syndrome [Recovered/Resolved]

NARRATIVE: CASE EVENT DATE: 2019
